FAERS Safety Report 11080634 (Version 1)
Quarter: 2015Q2

REPORT INFORMATION
  Report Type: Spontaneous
  Country: US (occurrence: None)
  Receive Date: 20150430
  Receipt Date: 20150430
  Transmission Date: 20150821
  Serious: Yes (Other)
  Sender: FDA-Public Use
  Company Number: None

PATIENT
  Age: 35 Year
  Sex: Female
  Weight: 90.72 kg

DRUGS (1)
  1. TUBERCULIN NOS [Suspect]
     Active Substance: TUBERCULIN PURIFIED PROTEIN DERIVATIVE
     Indication: TUBERCULIN TEST
     Dosage: APPLIED TO A SURFACE USUALLY THE SKIN

REACTIONS (4)
  - Injection site pruritus [None]
  - Injection site swelling [None]
  - Injection site erythema [None]
  - Incorrect route of drug administration [None]

NARRATIVE: CASE EVENT DATE: 20150422
